FAERS Safety Report 7439713-6 (Version None)
Quarter: 2011Q2

REPORT INFORMATION
  Report Type: 
  Country: None (occurrence: None)
  Receive Date: 20110427
  Receipt Date: 20110415
  Transmission Date: 20111010
  Serious: Yes (Death, Other)
  Sender: FDA-Public Use
  Company Number: PHHY2011MX34706

PATIENT
  Sex: Female

DRUGS (6)
  1. DIOVAN [Suspect]
     Indication: HYPERTENSION
     Dosage: 1 DF, BID
     Route: 048
     Dates: start: 20050701, end: 20100619
  2. ASPIRIN [Concomitant]
  3. CO-DIOVAN [Suspect]
     Dosage: 160 MG VALS AND  25 MG HYDR  (2 TABLETS)
     Route: 048
     Dates: end: 20100625
  4. DIOVAN [Suspect]
     Dosage: UNK
     Dates: end: 20100625
  5. ANTICOAGULANTS [Concomitant]
  6. EXFORGE HCT [Suspect]
     Dosage: 1 DF, BID
     Route: 048
     Dates: start: 20100625

REACTIONS (9)
  - CHEST PAIN [None]
  - BLOOD PRESSURE INCREASED [None]
  - HEADACHE [None]
  - CARDIAC ARREST [None]
  - CEREBROVASCULAR ACCIDENT [None]
  - THROMBOSIS [None]
  - SYNCOPE [None]
  - ARRHYTHMIA [None]
  - MYOCARDIAL INFARCTION [None]
